FAERS Safety Report 5772805-6 (Version None)
Quarter: 2008Q2

REPORT INFORMATION
  Report Type: 
  Country: None (occurrence: None)
  Receive Date: 20080613
  Receipt Date: 20080609
  Transmission Date: 20081010
  Serious: No
  Sender: FDA-Public Use
  Company Number: BR-GILEAD-2008-0016829

PATIENT
  Sex: Female
  Weight: 58 kg

DRUGS (4)
  1. AMBRISENTAN [Suspect]
     Indication: PULMONARY ARTERIAL HYPERTENSION
     Dates: start: 20051219, end: 20080609
  2. PANTOPRAZOLE [Concomitant]
     Dates: start: 20060314
  3. FUROSEMIDE [Concomitant]
     Dates: start: 20070514
  4. WARFARIN [Concomitant]
     Dates: start: 20070514

REACTIONS (1)
  - PREGNANCY [None]
